FAERS Safety Report 6796090-1 (Version None)
Quarter: 2010Q2

REPORT INFORMATION
  Report Type: 
  Country: None (occurrence: None)
  Receive Date: 20100625
  Receipt Date: 20100618
  Transmission Date: 20101027
  Serious: Yes (Other)
  Sender: FDA-Public Use
  Company Number: FR-JNJFOC-20100606591

PATIENT
  Age: 27 Year
  Sex: Male

DRUGS (1)
  1. HALDOL DECANOAS [Suspect]
     Indication: PSYCHOTIC DISORDER
     Route: 030
     Dates: start: 20070101

REACTIONS (2)
  - PRURITUS GENERALISED [None]
  - RESPIRATORY DISORDER [None]
